FAERS Safety Report 19920899 (Version 3)
Quarter: 2022Q1

REPORT INFORMATION
  Report Type: Report from Study
  Country: NL (occurrence: NL)
  Receive Date: 20211005
  Receipt Date: 20220103
  Transmission Date: 20220424
  Serious: Yes (Other)
  Sender: FDA-Public Use
  Company Number: NL-ABBVIE-21K-114-3921970-00

PATIENT
  Age: 55 Year
  Sex: Female

DRUGS (12)
  1. CARBIDOPA\LEVODOPA [Suspect]
     Active Substance: CARBIDOPA\LEVODOPA
     Indication: Parkinson^s disease
     Dosage: MD: 5.0 ML, CD: 2.5 ML/H, ED: 2.0 ML
     Route: 050
     Dates: start: 20210517, end: 2021
  2. CARBIDOPA\LEVODOPA [Suspect]
     Active Substance: CARBIDOPA\LEVODOPA
     Dosage: CD: 3.1ML/H.
     Route: 050
     Dates: start: 2021, end: 2021
  3. CARBIDOPA\LEVODOPA [Suspect]
     Active Substance: CARBIDOPA\LEVODOPA
     Dosage: MD: 2.5 ML, CD: 3.2 ML/H, ED: 2.0 ML, ND: 0 ML, CND: 1.3 ML/H,?END: 1.0 ML
     Route: 050
     Dates: start: 2021, end: 2021
  4. CARBIDOPA\LEVODOPA [Suspect]
     Active Substance: CARBIDOPA\LEVODOPA
     Dosage: MD: 2.5 ML, CD: 3.2 ML/H, ED: 2.0 ML, ND: 0 ML, CND: 1.6 ML/H,?END: 1.0 M
     Route: 050
     Dates: start: 2021, end: 2021
  5. CARBIDOPA\LEVODOPA [Suspect]
     Active Substance: CARBIDOPA\LEVODOPA
     Dosage: CD: 1.3 ML/H, ED: 1.0 ML
     Route: 050
     Dates: start: 2021, end: 2021
  6. CARBIDOPA\LEVODOPA [Suspect]
     Active Substance: CARBIDOPA\LEVODOPA
     Dosage: CD: 1.6 ML/H, ED: 1.0 ML
     Route: 050
     Dates: start: 2021, end: 2021
  7. CARBIDOPA\LEVODOPA [Suspect]
     Active Substance: CARBIDOPA\LEVODOPA
     Dosage: MD 1.5 ML; CD 2.8 ML/H; ED 1.0 ML
     Route: 050
     Dates: start: 2021, end: 2021
  8. CARBIDOPA\LEVODOPA [Suspect]
     Active Substance: CARBIDOPA\LEVODOPA
     Dosage: END: 1.0 ML, CND: 2.1 ML/H
     Route: 050
     Dates: start: 2021, end: 2021
  9. CARBIDOPA\LEVODOPA [Suspect]
     Active Substance: CARBIDOPA\LEVODOPA
     Dosage: MD: 1.5 ML, CD: 3.1 ML/H, ED: 1.0 ML, CND: 1.9 ML/H, END: 1.0 ML
     Route: 050
     Dates: start: 2021, end: 2021
  10. CARBIDOPA\LEVODOPA [Suspect]
     Active Substance: CARBIDOPA\LEVODOPA
     Dosage: CND 2.1 ML/H END 1.0 ML
     Route: 050
     Dates: start: 2021
  11. SINEMET [Concomitant]
     Active Substance: CARBIDOPA\LEVODOPA
     Indication: Parkinson^s disease
  12. ONDANSETRON [Concomitant]
     Active Substance: ONDANSETRON
     Indication: Nausea

REACTIONS (42)
  - Suicidal ideation [Not Recovered/Not Resolved]
  - Device issue [Unknown]
  - Burning sensation [Not Recovered/Not Resolved]
  - Orgasm abnormal [Recovered/Resolved]
  - Pubic pain [Recovered/Resolved]
  - Panic reaction [Recovered/Resolved]
  - Infrequent bowel movements [Not Recovered/Not Resolved]
  - Oral mucosal blistering [Not Recovered/Not Resolved]
  - Oral discomfort [Unknown]
  - Muscle spasms [Not Recovered/Not Resolved]
  - Vomiting [Recovered/Resolved]
  - Nausea [Not Recovered/Not Resolved]
  - Decreased appetite [Recovered/Resolved]
  - Unevaluable event [Not Recovered/Not Resolved]
  - Drug ineffective [Not Recovered/Not Resolved]
  - Fear [Not Recovered/Not Resolved]
  - Device dislocation [Recovered/Resolved]
  - Device issue [Not Recovered/Not Resolved]
  - Device difficult to use [Not Recovered/Not Resolved]
  - Device placement issue [Recovered/Resolved]
  - Restlessness [Not Recovered/Not Resolved]
  - Dry mouth [Not Recovered/Not Resolved]
  - Secretion discharge [Not Recovered/Not Resolved]
  - Muscle rigidity [Not Recovered/Not Resolved]
  - Pain in jaw [Not Recovered/Not Resolved]
  - Mental disorder [Not Recovered/Not Resolved]
  - Poor quality sleep [Recovering/Resolving]
  - Discomfort [Not Recovered/Not Resolved]
  - Stoma site pain [Recovered/Resolved]
  - On and off phenomenon [Not Recovered/Not Resolved]
  - Feeling abnormal [Not Recovered/Not Resolved]
  - Dyskinesia [Not Recovered/Not Resolved]
  - Musculoskeletal stiffness [Not Recovered/Not Resolved]
  - Asthenia [Not Recovered/Not Resolved]
  - Hallucination, visual [Not Recovered/Not Resolved]
  - Limb discomfort [Not Recovered/Not Resolved]
  - Head discomfort [Not Recovered/Not Resolved]
  - Dysphonia [Not Recovered/Not Resolved]
  - Gait disturbance [Not Recovered/Not Resolved]
  - Mobility decreased [Not Recovered/Not Resolved]
  - Dystonia [Not Recovered/Not Resolved]
  - Memory impairment [Not Recovered/Not Resolved]

NARRATIVE: CASE EVENT DATE: 20210101
